FAERS Safety Report 8693398 (Version 2)
Quarter: 2012Q4

REPORT INFORMATION
  Report Type: 
  Country: FR (occurrence: FR)
  Receive Date: 20120730
  Receipt Date: 20121211
  Transmission Date: 20130627
  Serious: Yes (Other)
  Sender: FDA-Public Use
  Company Number: FR-FRI-1000017403

PATIENT
  Age: 29 Year
  Sex: Female

DRUGS (10)
  1. MILNACIPRAN [Suspect]
     Indication: PRODUCT USED FOR UNKNOWN INDICATION
     Dosage: 100 mg
     Route: 048
  2. APIXABAN [Suspect]
     Indication: EMBOLISM
     Dosage: 10 mg
     Route: 048
     Dates: start: 20101021, end: 20101022
  3. WARFARIN SODIUM [Suspect]
     Indication: EMBOLISM
     Dosage: 6 mg
     Route: 048
     Dates: start: 20101021, end: 20101021
  4. ENOXAPARIN SODIUM [Suspect]
     Indication: EMBOLISM
     Dosage: 87 ml
     Route: 058
     Dates: start: 20101021, end: 20101022
  5. ABILIFY [Suspect]
     Indication: PRODUCT USED FOR UNKNOWN INDICATION
     Dosage: 10 mg
     Route: 048
  6. PLACEBO [Suspect]
     Indication: EMBOLISM ARTERIAL
     Dates: start: 20101021, end: 201010
  7. PROPANOLOL HYDROCHLORIDE [Concomitant]
  8. LEPTICUR [Concomitant]
  9. LEVOTHYROXINE [Concomitant]
  10. INEXIUM [Concomitant]
     Dates: start: 20101021

REACTIONS (3)
  - Psychiatric decompensation [Recovered/Resolved]
  - Mood altered [Unknown]
  - Suicidal behaviour [Unknown]
